FAERS Safety Report 10428501 (Version 1)
Quarter: 2014Q3

REPORT INFORMATION
  Report Type: Spontaneous
  Country: CA (occurrence: CA)
  Receive Date: 20140903
  Receipt Date: 20140903
  Transmission Date: 20150326
  Serious: Yes (Other)
  Sender: FDA-Public Use
  Company Number: CA-GLAXOSMITHKLINE-A1021521A

PATIENT
  Sex: Female

DRUGS (1)
  1. BENLYSTA [Suspect]
     Active Substance: BELIMUMAB
     Indication: SYSTEMIC LUPUS ERYTHEMATOSUS
     Dosage: 610MG SEE DOSAGE TEXT
     Route: 042
     Dates: start: 20120731, end: 20130403

REACTIONS (6)
  - Depression [Unknown]
  - Mental disorder [Unknown]
  - Shoulder operation [Unknown]
  - Ill-defined disorder [Recovering/Resolving]
  - Influenza [Unknown]
  - Impaired work ability [Unknown]
